FAERS Safety Report 24674471 (Version 2)
Quarter: 2024Q4

REPORT INFORMATION
  Report Type: Spontaneous
  Country: FR (occurrence: FR)
  Receive Date: 20241128
  Receipt Date: 20241219
  Transmission Date: 20250115
  Serious: No
  Sender: Kenvue
  Company Number: None

PATIENT

DRUGS (1)
  1. CETIRIZINE HYDROCHLORIDE [Suspect]
     Active Substance: CETIRIZINE HYDROCHLORIDE
     Indication: Hypersensitivity
     Dosage: 1 DOSAGE FORM, ONCE A DAY
     Route: 048
     Dates: start: 20230413, end: 20230423

REACTIONS (1)
  - Alopecia areata [Recovered/Resolved]

NARRATIVE: CASE EVENT DATE: 20230413
